FAERS Safety Report 7167583-2 (Version None)
Quarter: 2010Q4

REPORT INFORMATION
  Report Type: 
  Country: None (occurrence: None)
  Receive Date: 20101216
  Receipt Date: 20100817
  Transmission Date: 20110411
  Serious: No
  Sender: FDA-Public Use
  Company Number: A0855598A

PATIENT
  Age: 60 Year
  Sex: Female

DRUGS (2)
  1. NICORETTE [Suspect]
     Indication: SMOKING CESSATION THERAPY
     Dates: start: 20100416
  2. NICORETTE [Suspect]
     Indication: SMOKING CESSATION THERAPY

REACTIONS (4)
  - NAUSEA [None]
  - PRODUCT QUALITY ISSUE [None]
  - SALIVARY HYPERSECRETION [None]
  - STOMATITIS [None]
